FAERS Safety Report 14682488 (Version 2)
Quarter: 2018Q2

REPORT INFORMATION
  Report Type: Report from Study
  Country: FR (occurrence: FR)
  Receive Date: 20180327
  Receipt Date: 20180424
  Transmission Date: 20180711
  Serious: Yes (Hospitalization)
  Sender: FDA-Public Use
  Company Number: FR-ROCHE-2062274

PATIENT
  Age: 73 Year
  Sex: Male

DRUGS (3)
  1. OBINUTUZUMAB. [Suspect]
     Active Substance: OBINUTUZUMAB
     Indication: WALDENSTROM^S MACROGLOBULINAEMIA
     Dosage: EVERY 1 CYCLE?(D1C1)?LAST ADMINISTRATION BEFORE SERIOUS ADVERSE EVENT (SAE) ONSET: 08/AUG/2017 (D1C6
     Route: 041
     Dates: start: 20170321, end: 20170808
  2. IDELALISIB [Suspect]
     Active Substance: IDELALISIB
     Route: 048
     Dates: end: 20171219
  3. IDELALISIB [Suspect]
     Active Substance: IDELALISIB
     Indication: WALDENSTROM^S MACROGLOBULINAEMIA
     Dosage: (D1C1)
     Route: 048
     Dates: start: 20170321, end: 20170516

REACTIONS (3)
  - Sepsis [Not Recovered/Not Resolved]
  - Pneumonia [Not Recovered/Not Resolved]
  - Acute coronary syndrome [Not Recovered/Not Resolved]

NARRATIVE: CASE EVENT DATE: 20171219
